FAERS Safety Report 5722502-8 (Version None)
Quarter: 2008Q2

REPORT INFORMATION
  Report Type: 
  Country: None (occurrence: None)
  Receive Date: 20080429
  Receipt Date: 20070821
  Transmission Date: 20081010
  Serious: No
  Sender: FDA-Public Use
  Company Number: US-ASTRAZENECA-2007UW20054

PATIENT
  Sex: Male
  Weight: 85.3 kg

DRUGS (1)
  1. NEXIUM [Suspect]
     Indication: GASTROOESOPHAGEAL REFLUX DISEASE
     Route: 048
     Dates: start: 20070819

REACTIONS (4)
  - FATIGUE [None]
  - FEELING HOT [None]
  - PANIC ATTACK [None]
  - SOMNOLENCE [None]
